FAERS Safety Report 6980213-5 (Version None)
Quarter: 2010Q3

REPORT INFORMATION
  Report Type: 
  Country: None (occurrence: None)
  Receive Date: 20100909
  Receipt Date: 20100825
  Transmission Date: 20110219
  Serious: Yes (Hospitalization)
  Sender: FDA-Public Use
  Company Number: IDA-00426

PATIENT
  Age: 39 Year
  Sex: Female

DRUGS (2)
  1. INDERAL [Suspect]
     Indication: HYPOTHYROIDISM
     Dosage: 40 MG DAILY ORAL FORMULATION:
     Route: 048
     Dates: start: 20100713, end: 20100722
  2. TAPAZOLE [Suspect]
     Indication: HYPOTHYROIDISM
     Dosage: 20 MG DAILY ORAL FORMULATION:
     Route: 048
     Dates: start: 20100711, end: 20100722

REACTIONS (2)
  - ANGIOEDEMA [None]
  - URTICARIA [None]
